FAERS Safety Report 7611148-2 (Version None)
Quarter: 2011Q3

REPORT INFORMATION
  Report Type: 
  Country: None (occurrence: None)
  Receive Date: 20110715
  Receipt Date: 20110712
  Transmission Date: 20111222
  Serious: Yes (Other)
  Sender: FDA-Public Use
  Company Number: US-SANOFI-AVENTIS-2011SA034059

PATIENT
  Age: 75 Year
  Sex: Female

DRUGS (9)
  1. LANTUS [Concomitant]
     Dosage: DOSE:10 UNIT(S)
  2. POTASSIUM CHLORIDE [Concomitant]
  3. SYNTHROID [Concomitant]
     Indication: HYPOTHYROIDISM
  4. MULTAQ [Suspect]
     Indication: ATRIAL FIBRILLATION
     Route: 048
     Dates: start: 20100401, end: 20110701
  5. DIOVAN [Concomitant]
     Indication: BLOOD PRESSURE
  6. GLYBURIDE [Concomitant]
     Indication: DIABETES MELLITUS
  7. ATORVASTATIN [Concomitant]
  8. PREVACID [Concomitant]
  9. PLAVIX [Concomitant]
     Indication: ANTICOAGULANT THERAPY

REACTIONS (6)
  - BLINDNESS [None]
  - VISION BLURRED [None]
  - CONSTIPATION [None]
  - ATRIAL FIBRILLATION [None]
  - HALO VISION [None]
  - CONDITION AGGRAVATED [None]
